FAERS Safety Report 4714131-X (Version None)
Quarter: 2005Q2

REPORT INFORMATION
  Report Type: 
  Country: None (occurrence: None)
  Receive Date: 20050630
  Receipt Date: 20050105
  Transmission Date: 20051028
  Serious: Yes (Other)
  Sender: FDA-Public Use
  Company Number: 2005-01-2351

PATIENT
  Age: 40 Year
  Sex: Female

DRUGS (5)
  1. ALBUTEROL [Suspect]
     Indication: ASTHMA
     Dosage: ORAL AER INH
     Route: 055
  2. DOXEPIN HYDROCHLORIDE CAPSULES [Concomitant]
  3. LEXAPRO (ESCITALOPRAM) TABLETS [Concomitant]
  4. XANAX [Concomitant]
  5. RIBAVIRIN [Concomitant]

REACTIONS (4)
  - ANXIETY [None]
  - ASTHMA [None]
  - BRONCHITIS [None]
  - DRUG INEFFECTIVE [None]
